FAERS Safety Report 4980964-8 (Version None)
Quarter: 2006Q2

REPORT INFORMATION
  Report Type: 
  Country: None (occurrence: None)
  Receive Date: 20060424
  Receipt Date: 20060413
  Transmission Date: 20061013
  Serious: Yes (Other)
  Sender: FDA-Public Use
  Company Number: US-JNJFOC-20060403357

PATIENT
  Sex: Male
  Weight: 80.74 kg

DRUGS (7)
  1. REMICADE [Suspect]
     Indication: RHEUMATOID ARTHRITIS
     Route: 042
  2. FOLIC ACID [Concomitant]
  3. LEUCOVORIN [Concomitant]
  4. METHOTREXATE SODIUM [Concomitant]
  5. MOBIC [Concomitant]
  6. CENTRUM [Concomitant]
  7. CENTRUM [Concomitant]

REACTIONS (1)
  - BASAL CELL CARCINOMA [None]
